FAERS Safety Report 9553777 (Version 1)
Quarter: 2013Q3

REPORT INFORMATION
  Report Type: Spontaneous
  Country: US (occurrence: None)
  Receive Date: 20130924
  Receipt Date: 20130924
  Transmission Date: 20140515
  Serious: Yes (Disabling)
  Sender: FDA-Public Use
  Company Number: None

PATIENT
  Age: 75 Year
  Sex: Female
  Weight: 61.24 kg

DRUGS (6)
  1. TIMOPTIC [Suspect]
     Indication: GLAUCOMA
     Dosage: 1DROP, IN EYE
     Route: 047
     Dates: start: 20130130, end: 20130810
  2. OMEPRAZOLE [Concomitant]
  3. SYMBICORT [Concomitant]
  4. LOSARTAN [Concomitant]
  5. IBUPROFEN [Concomitant]
  6. DEXTROMETHORPHAN [Concomitant]

REACTIONS (4)
  - Cough [None]
  - Rhinitis allergic [None]
  - Bronchitis [None]
  - Pneumonia [None]
